FAERS Safety Report 4706218-2 (Version None)
Quarter: 2005Q2

REPORT INFORMATION
  Report Type: 
  Country: None (occurrence: None)
  Receive Date: 20050629
  Receipt Date: 20050615
  Transmission Date: 20051028
  Serious: Yes (Other)
  Sender: FDA-Public Use
  Company Number: 215344

PATIENT
  Sex: Female

DRUGS (2)
  1. RITUXAN [Suspect]
     Indication: LYMPHOMA
  2. ONTAK (DENILEUKIN DIFTITOX) [Concomitant]

REACTIONS (3)
  - IMPAIRED DRIVING ABILITY [None]
  - RETINAL DEGENERATION [None]
  - VISUAL ACUITY REDUCED [None]
